FAERS Safety Report 10867207 (Version 1)
Quarter: 2015Q1

REPORT INFORMATION
  Report Type: Spontaneous
  Country: US (occurrence: None)
  Receive Date: 20150220
  Receipt Date: 20150220
  Transmission Date: 20150721
  Serious: Yes (Other)
  Sender: FDA-Public Use
  Company Number: None

PATIENT
  Age: 52 Year
  Sex: Female
  Weight: 83.01 kg

DRUGS (1)
  1. ERGOCALCIFEROL. [Suspect]
     Active Substance: ERGOCALCIFEROL
     Indication: VITAMIN D DEFICIENCY
     Dosage: 1 CAPSULE, ONCE WEEKLY, ORAL
     Route: 048
     Dates: start: 20150201, end: 20150219

REACTIONS (2)
  - Abdominal pain [None]
  - Diarrhoea [None]

NARRATIVE: CASE EVENT DATE: 20150219
